FAERS Safety Report 16716802 (Version 2)
Quarter: 2019Q3

REPORT INFORMATION
  Report Type: Spontaneous
  Country: US (occurrence: US)
  Receive Date: 20190819
  Receipt Date: 20190827
  Transmission Date: 20191005
  Serious: No
  Sender: FDA-Public Use
  Company Number: US-GLAXOSMITHKLINE-US2019AMR146573

PATIENT
  Age: 69 Year
  Sex: Male

DRUGS (2)
  1. ALBUTEROL SULFATE INHALATION POWDER [Suspect]
     Active Substance: ALBUTEROL SULFATE
     Indication: ASTHMA
     Dosage: 2 PUFF(S), BID
     Route: 065
  2. ALBUTEROL SULFATE INHALATION POWDER [Suspect]
     Active Substance: ALBUTEROL SULFATE
     Indication: COUGH

REACTIONS (4)
  - Underdose [Unknown]
  - Off label use [Unknown]
  - Wrong technique in product usage process [Unknown]
  - Device use error [Unknown]

NARRATIVE: CASE EVENT DATE: 201908
